FAERS Safety Report 10821012 (Version 1)
Quarter: 2015Q1

REPORT INFORMATION
  Report Type: Spontaneous
  Country: US (occurrence: US)
  Receive Date: 20150218
  Receipt Date: 20150218
  Transmission Date: 20150721
  Serious: Yes (Hospitalization)
  Sender: FDA-Public Use
  Company Number: US-CELGENEUS-163-21880-14012697

PATIENT
  Age: 83 Year
  Sex: Male

DRUGS (2)
  1. STEROID [Suspect]
     Active Substance: UNSPECIFIED INGREDIENT
     Indication: PRODUCT USED FOR UNKNOWN INDICATION
     Route: 065
  2. REVLIMID [Suspect]
     Active Substance: LENALIDOMIDE
     Indication: PLASMA CELL MYELOMA
     Dosage: 25 MILLIGRAM
     Route: 048
     Dates: start: 20140104, end: 20140112

REACTIONS (3)
  - Asthenia [Unknown]
  - Tremor [Unknown]
  - Dehydration [Unknown]

NARRATIVE: CASE EVENT DATE: 20140112
